FAERS Safety Report 21415176 (Version 3)
Quarter: 2022Q4

REPORT INFORMATION
  Report Type: Report from Study
  Country: US (occurrence: US)
  Receive Date: 20221006
  Receipt Date: 20221018
  Transmission Date: 20230112
  Serious: Yes (Hospitalization)
  Sender: FDA-Public Use
  Company Number: US-ABBVIE-4140128

PATIENT
  Age: 84 Year
  Sex: Female
  Weight: 35.38 kg

DRUGS (8)
  1. DUOPA [Suspect]
     Active Substance: CARBIDOPA\LEVODOPA
     Indication: Parkinson^s disease
     Dates: start: 20220920, end: 20221001
  2. DUOPA [Suspect]
     Active Substance: CARBIDOPA\LEVODOPA
     Route: 050
     Dates: start: 20221004
  3. DUOPA [Suspect]
     Active Substance: CARBIDOPA\LEVODOPA
     Dates: start: 20221004, end: 20221013
  4. DUOPA [Suspect]
     Active Substance: CARBIDOPA\LEVODOPA
     Route: 050
     Dates: start: 20220920, end: 2022
  5. AMANTADINE [Concomitant]
     Active Substance: AMANTADINE
     Indication: Parkinson^s disease
  6. MIRAPEX [Concomitant]
     Active Substance: PRAMIPEXOLE DIHYDROCHLORIDE
     Indication: Parkinson^s disease
  7. RESTASIS [Concomitant]
     Active Substance: CYCLOSPORINE
     Indication: Eye disorder
  8. Covid-19 Vaccine [Concomitant]
     Indication: COVID-19 immunisation
     Dosage: MODERNA

REACTIONS (15)
  - Hospitalisation [Unknown]
  - Seizure [Recovered/Resolved]
  - Device dislocation [Not Recovered/Not Resolved]
  - Device issue [Unknown]
  - Pain in extremity [Unknown]
  - Blood catecholamines decreased [Unknown]
  - Drug ineffective [Unknown]
  - Hallucination [Unknown]
  - Speech disorder [Unknown]
  - Panic attack [Unknown]
  - Hallucination [Unknown]
  - Unevaluable event [Unknown]
  - Thinking abnormal [Unknown]
  - Feeling abnormal [Unknown]
  - Restless legs syndrome [Unknown]

NARRATIVE: CASE EVENT DATE: 20221001
